FAERS Safety Report 20412597 (Version 1)
Quarter: 2022Q1

REPORT INFORMATION
  Report Type: Spontaneous
  Country: US (occurrence: US)
  Receive Date: 20220201
  Receipt Date: 20220201
  Transmission Date: 20220423
  Serious: No
  Sender: FDA-Public Use
  Company Number: US-SUNOVION-2022SUN000132

PATIENT
  Sex: Female

DRUGS (1)
  1. LONHALA MAGNAIR [Suspect]
     Active Substance: GLYCOPYRROLATE
     Indication: Product used for unknown indication
     Dosage: 25 ?G/1ML
     Route: 055

REACTIONS (4)
  - Anxiety [Not Recovered/Not Resolved]
  - Depression [Not Recovered/Not Resolved]
  - Malaise [Not Recovered/Not Resolved]
  - Device issue [Unknown]
